FAERS Safety Report 4892698-9 (Version None)
Quarter: 2006Q1

REPORT INFORMATION
  Report Type: 
  Country: None (occurrence: None)
  Receive Date: 20060125
  Receipt Date: 20060125
  Transmission Date: 20060701
  Serious: Yes (Hospitalization)
  Sender: FDA-Public Use
  Company Number: None

PATIENT
  Sex: Female

DRUGS (4)
  1. FUROSEMIDE [Suspect]
     Indication: HYPERTENSION
     Dosage: 60MG, QD, ORAL
     Route: 048
  2. ESCITALOPRAM OXALATE [Concomitant]
  3. POTASSIUM CHLORIDE [Concomitant]
  4. ALBUTEROL SULFATE AUTOHALER [Concomitant]

REACTIONS (5)
  - DYSPNOEA [None]
  - OEDEMA PERIPHERAL [None]
  - ORTHOPNOEA [None]
  - TREATMENT NONCOMPLIANCE [None]
  - URINE OUTPUT DECREASED [None]
